FAERS Safety Report 19057952 (Version 1)
Quarter: 2021Q1

REPORT INFORMATION
  Report Type: Spontaneous
  Country: US (occurrence: US)
  Receive Date: 20210325
  Receipt Date: 20210325
  Transmission Date: 20210420
  Serious: No
  Sender: FDA-Public Use
  Company Number: None

PATIENT
  Age: 84 Year
  Sex: Male
  Weight: 81 kg

DRUGS (4)
  1. ERLEADA [Suspect]
     Active Substance: APALUTAMIDE
     Indication: PROSTATE CANCER
     Route: 048
     Dates: start: 20200924
  2. VIAGRA [Concomitant]
     Active Substance: SILDENAFIL CITRATE
  3. GLUCOSAMINE CHONDROITIN [Concomitant]
     Active Substance: CHONDROITIN SULFATE (BOVINE)\GLUCOSAMINE HYDROCHLORIDE
  4. AMLODIPINE 10 MG [Concomitant]
     Active Substance: AMLODIPINE BESYLATE

REACTIONS (4)
  - Balance disorder [None]
  - Fatigue [None]
  - Feeling abnormal [None]
  - Discomfort [None]
